FAERS Safety Report 5592299-3 (Version None)
Quarter: 2007Q4

REPORT INFORMATION
  Report Type: 
  Country: None (occurrence: None)
  Receive Date: 20071217
  Receipt Date: 20070831
  Transmission Date: 20080405
  Serious: Yes (Other)
  Sender: FDA-Public Use
  Company Number: BDI-010140

PATIENT
  Age: 51 Year
  Sex: Female

DRUGS (1)
  1. MULTIHANCE [Suspect]
     Indication: ANGIOGRAM ABNORMAL
     Dosage: 30 ML ONCE IV
     Route: 042
     Dates: start: 20070831, end: 20070831

REACTIONS (4)
  - DYSPNOEA [None]
  - FEELING HOT [None]
  - HYPERHIDROSIS [None]
  - LOSS OF CONSCIOUSNESS [None]
